FAERS Safety Report 21652496 (Version 1)
Quarter: 2022Q4

REPORT INFORMATION
  Report Type: Spontaneous
  Country: US (occurrence: US)
  Receive Date: 20221128
  Receipt Date: 20221128
  Transmission Date: 20230113
  Serious: Yes (Hospitalization, Other)
  Sender: FDA-Public Use
  Company Number: US-BIOMARINAP-US-2021-134815

PATIENT

DRUGS (2)
  1. VIMIZIM [Suspect]
     Active Substance: ELOSULFASE ALFA
     Indication: Mucopolysaccharidosis IV
     Dosage: UNK, QW
     Route: 042
  2. VIMIZIM [Suspect]
     Active Substance: ELOSULFASE ALFA
     Dosage: UNK, QW
     Route: 042
     Dates: start: 20170920

REACTIONS (2)
  - Knee operation [Unknown]
  - Gait inability [Unknown]
